FAERS Safety Report 13892770 (Version 1)
Quarter: 2017Q3

REPORT INFORMATION
  Report Type: Spontaneous
  Country: US (occurrence: US)
  Receive Date: 20170822
  Receipt Date: 20170822
  Transmission Date: 20171127
  Serious: No
  Sender: FDA-Public Use
  Company Number: US-ROCHE-1409026

PATIENT
  Sex: Female

DRUGS (5)
  1. HERCEPTIN [Suspect]
     Active Substance: TRASTUZUMAB
     Dosage: LOADING DOSE AND WOULD BE RECEIVE TRASTUZUMAB EVERY THREE WEEKS UNTIL FEBRUARY.
     Route: 065
     Dates: start: 20140509, end: 20140512
  2. ABRAXANE [Concomitant]
     Active Substance: PACLITAXEL
     Indication: HER-2 POSITIVE BREAST CANCER
     Route: 065
     Dates: start: 20140228, end: 20140512
  3. TAXOL [Suspect]
     Active Substance: PACLITAXEL
     Indication: HER-2 POSITIVE BREAST CANCER
     Dosage: ALONG WITH HERCEPTIN
     Route: 065
     Dates: start: 20140214, end: 20140221
  4. HERCEPTIN [Suspect]
     Active Substance: TRASTUZUMAB
     Indication: HER-2 POSITIVE BREAST CANCER
     Dosage: ALONG WITH CHEMOTHERAPY
     Route: 065
     Dates: start: 20140214
  5. TAMBOCOR [Concomitant]
     Active Substance: FLECAINIDE ACETATE
     Indication: ATRIAL FIBRILLATION
     Dosage: AS NEEDED
     Route: 065

REACTIONS (6)
  - Fluid retention [Not Recovered/Not Resolved]
  - Rash [Not Recovered/Not Resolved]
  - Breast disorder [Unknown]
  - Cognitive disorder [Not Recovered/Not Resolved]
  - Hypersensitivity [Recovered/Resolved]
  - Weight increased [Not Recovered/Not Resolved]
